FAERS Safety Report 5488078-8 (Version None)
Quarter: 2007Q4

REPORT INFORMATION
  Report Type: 
  Country: None (occurrence: None)
  Receive Date: 20071017
  Receipt Date: 20071015
  Transmission Date: 20080405
  Serious: Yes (Death, Life-Threatening)
  Sender: FDA-Public Use
  Company Number: FR-JNJFOC-20071003246

PATIENT
  Sex: Female

DRUGS (7)
  1. RISPERDAL [Suspect]
     Route: 048
  2. RISPERDAL [Suspect]
     Indication: SCHIZOPHRENIA
     Route: 048
  3. LASIX [Suspect]
     Indication: DRUG USE FOR UNKNOWN INDICATION
  4. IMOVANE [Suspect]
     Indication: DRUG USE FOR UNKNOWN INDICATION
  5. PREVISCAN [Suspect]
     Indication: DRUG USE FOR UNKNOWN INDICATION
  6. EQUANIL [Suspect]
     Indication: DRUG USE FOR UNKNOWN INDICATION
  7. SEROPRAM [Suspect]
     Indication: DRUG USE FOR UNKNOWN INDICATION

REACTIONS (1)
  - CIRCULATORY COLLAPSE [None]
